FAERS Safety Report 21627688 (Version 1)
Quarter: 2022Q4

REPORT INFORMATION
  Report Type: Spontaneous
  Country: JP (occurrence: JP)
  Receive Date: 20221122
  Receipt Date: 20221122
  Transmission Date: 20230113
  Serious: Yes (Other)
  Sender: FDA-Public Use
  Company Number: JP-PFIZER INC-202201286172

PATIENT
  Age: 51 Year
  Sex: Female

DRUGS (3)
  1. BINIMETINIB [Suspect]
     Active Substance: BINIMETINIB
     Indication: Colon cancer
     Dosage: 300 MG, DAILY
     Route: 048
  2. BINIMETINIB [Suspect]
     Active Substance: BINIMETINIB
     Dosage: 275 MG, DAILY
     Route: 048
  3. ENCORAFENIB [Suspect]
     Active Substance: ENCORAFENIB
     Indication: Colon cancer
     Dosage: UNK
     Route: 065

REACTIONS (4)
  - Retinopathy [Unknown]
  - Serous retinal detachment [Unknown]
  - Diarrhoea [Unknown]
  - Off label use [Unknown]
